FAERS Safety Report 11701775 (Version 1)
Quarter: 2015Q4

REPORT INFORMATION
  Report Type: Spontaneous
  Country: US (occurrence: US)
  Receive Date: 20151105
  Receipt Date: 20151105
  Transmission Date: 20160304
  Serious: No
  Sender: FDA-Public Use
  Company Number: US-MALLINCKRODT-T201503634

PATIENT
  Age: 50 Year
  Sex: Male
  Weight: 139 kg

DRUGS (7)
  1. SENNA [Concomitant]
     Active Substance: SENNA LEAF\SENNOSIDES\SENNOSIDES A AND B
  2. VALIUM [Concomitant]
     Active Substance: DIAZEPAM
     Dosage: UNK
  3. MORPHINE [Concomitant]
     Active Substance: MORPHINE
     Indication: BREAKTHROUGH PAIN
     Dosage: UNK
     Route: 065
  4. DEXEDRINE [Concomitant]
     Active Substance: DEXTROAMPHETAMINE SULFATE
     Dosage: UNK
  5. MEXILETINE [Concomitant]
     Active Substance: MEXILETINE
  6. FENTANYL TRANSDERMAL SYSTEM [Suspect]
     Active Substance: FENTANYL
     Indication: JOINT INJURY
  7. FENTANYL TRANSDERMAL SYSTEM [Suspect]
     Active Substance: FENTANYL
     Indication: BACK DISORDER
     Dosage: 100 MCG/HOUR Q72 HOURS
     Route: 062

REACTIONS (6)
  - Sensitivity to weather change [None]
  - Application site laceration [Not Recovered/Not Resolved]
  - Product adhesion issue [Recovered/Resolved]
  - Drug effect decreased [Not Recovered/Not Resolved]
  - Tremor [Not Recovered/Not Resolved]
  - Neuralgia [Not Recovered/Not Resolved]

NARRATIVE: CASE EVENT DATE: 20150721
